FAERS Safety Report 8212547-0 (Version None)
Quarter: 2012Q1

REPORT INFORMATION
  Report Type: 
  Country: None (occurrence: None)
  Receive Date: 20120228
  Receipt Date: 20111020
  Transmission Date: 20120608
  Serious: Yes (Death, Life-Threatening, Other)
  Sender: FDA-Public Use
  Company Number: RB-33331-2011

PATIENT
  Sex: Male

DRUGS (2)
  1. SUBOXONE [Suspect]
     Indication: DRUG DEPENDENCE
     Dates: end: 20110301
  2. XANAX [Suspect]
     Dates: end: 20110301

REACTIONS (1)
  - TOXICITY TO VARIOUS AGENTS [None]
